FAERS Safety Report 10475997 (Version 3)
Quarter: 2015Q1

REPORT INFORMATION
  Report Type: Report from Study
  Country: CH (occurrence: CH)
  Receive Date: 20140925
  Receipt Date: 20150130
  Transmission Date: 20150720
  Serious: Yes (Death, Other)
  Sender: FDA-Public Use
  Company Number: CH-ROCHE-1463803

PATIENT
  Age: 64 Year
  Sex: Female

DRUGS (14)
  1. AVASTIN [Suspect]
     Active Substance: BEVACIZUMAB
     Indication: PERITONEAL CARCINOMA METASTATIC
     Route: 042
     Dates: end: 201307
  2. CARBOPLATINUM [Suspect]
     Active Substance: CARBOPLATIN
     Route: 065
     Dates: start: 201402
  3. PACLITAXEL. [Concomitant]
     Active Substance: PACLITAXEL
     Route: 065
     Dates: start: 201403, end: 201408
  4. TORASEMID [Concomitant]
     Active Substance: TORSEMIDE
  5. AMLODIPIN [Concomitant]
     Active Substance: AMLODIPINE BESYLATE
  6. LETROZOLE. [Suspect]
     Active Substance: LETROZOLE
     Indication: PERITONEAL CARCINOMA METASTATIC
     Route: 065
     Dates: start: 201407
  7. DOCETAXEL. [Suspect]
     Active Substance: DOCETAXEL
     Indication: PERITONEAL CARCINOMA METASTATIC
     Route: 065
     Dates: start: 201402
  8. MARCOUMAR [Concomitant]
     Active Substance: PHENPROCOUMON
  9. BISOPROLOL [Concomitant]
     Active Substance: BISOPROLOL
  10. AVASTIN [Suspect]
     Active Substance: BEVACIZUMAB
     Route: 042
     Dates: start: 201403, end: 201408
  11. PACLITAXEL. [Concomitant]
     Active Substance: PACLITAXEL
     Indication: PERITONEAL CARCINOMA METASTATIC
     Route: 065
     Dates: start: 201210, end: 201304
  12. PANTOPRAZOLE [Concomitant]
     Active Substance: PANTOPRAZOLE SODIUM
  13. LIPOSOMAL DOXORUBICIN [Concomitant]
     Active Substance: DOXORUBICIN HYDROCHLORIDE
  14. CARBOPLATINUM [Suspect]
     Active Substance: CARBOPLATIN
     Indication: PERITONEAL CARCINOMA METASTATIC
     Route: 065
     Dates: start: 201210, end: 201304

REACTIONS (12)
  - Pleural effusion [Unknown]
  - Gastrointestinal disorder [Unknown]
  - Hypertension [Not Recovered/Not Resolved]
  - Disease progression [Fatal]
  - Headache [Unknown]
  - Lymphadenopathy [Unknown]
  - Malignant peritoneal neoplasm [Unknown]
  - Dyspnoea [Unknown]
  - Hepatic lesion [Unknown]
  - Mucosal inflammation [Unknown]
  - Anaphylactic reaction [Unknown]
  - Off label use [Unknown]

NARRATIVE: CASE EVENT DATE: 201402
